FAERS Safety Report 5619426-3 (Version None)
Quarter: 2008Q1

REPORT INFORMATION
  Report Type: 
  Country: None (occurrence: None)
  Receive Date: 20080109
  Receipt Date: 20070110
  Transmission Date: 20080703
  Serious: Yes (Other)
  Sender: FDA-Public Use
  Company Number: WAES 0701USA01689

PATIENT
  Sex: Male

DRUGS (1)
  1. ZETIA [Suspect]
     Indication: BLOOD CHOLESTEROL INCREASED
     Dosage: 10 MG, DAILY, PO
     Route: 048
     Dates: end: 20061229

REACTIONS (1)
  - BLOOD CREATINE PHOSPHOKINASE INCREASED [None]
